FAERS Safety Report 15560124 (Version 1)
Quarter: 2018Q4

REPORT INFORMATION
  Report Type: Spontaneous
  Country: JP (occurrence: JP)
  Receive Date: 20181029
  Receipt Date: 20181029
  Transmission Date: 20190205
  Serious: Yes (Death)
  Sender: FDA-Public Use
  Company Number: JP-MITSUBISHI TANABE PHARMA CORPORATION-MTPC2018-0028104

PATIENT
  Age: 70 Year
  Sex: Male

DRUGS (2)
  1. RADICUT [Suspect]
     Active Substance: EDARAVONE
     Indication: AMYOTROPHIC LATERAL SCLEROSIS
     Route: 041
  2. RADICUT [Suspect]
     Active Substance: EDARAVONE
     Route: 041
     Dates: start: 20180516

REACTIONS (1)
  - Amyotrophic lateral sclerosis [Fatal]
